FAERS Safety Report 15347890 (Version 1)
Quarter: 2018Q3

REPORT INFORMATION
  Report Type: Spontaneous
  Country: FR (occurrence: FR)
  Receive Date: 20180904
  Receipt Date: 20180904
  Transmission Date: 20181010
  Serious: Yes (Other)
  Sender: FDA-Public Use
  Company Number: FR-CASPER PHARMA LLC-2018CAS000032

PATIENT
  Age: 1 Month
  Sex: Male

DRUGS (2)
  1. PENICILLIN G BENZATHINE [Suspect]
     Active Substance: PENICILLIN G BENZATHINE
     Dosage: UNK
     Route: 063
  2. PENICILLIN G [Concomitant]
     Active Substance: PENICILLIN G
     Indication: CONGENITAL SYPHILIS
     Dosage: 10 INTERNATIONAL UNIT
     Route: 065

REACTIONS (2)
  - Exposure via breast milk [Unknown]
  - Jarisch-Herxheimer reaction [Unknown]
